FAERS Safety Report 7423324-2 (Version None)
Quarter: 2011Q2

REPORT INFORMATION
  Report Type: 
  Country: None (occurrence: None)
  Receive Date: 20110419
  Receipt Date: 20110405
  Transmission Date: 20111010
  Serious: Yes (Other)
  Sender: FDA-Public Use
  Company Number: PHHY2011GB29667

PATIENT
  Age: 72 Year
  Sex: Female

DRUGS (4)
  1. DOXAZOSIN [Concomitant]
     Indication: HYPERTENSION
  2. LISINOPRIL [Concomitant]
     Indication: HYPERTENSION
  3. NIFEDIPINE [Concomitant]
     Indication: HYPERTENSION
  4. DICLOFENAC [Suspect]
     Indication: OSTEOARTHRITIS

REACTIONS (7)
  - ABDOMINAL TENDERNESS [None]
  - ABDOMINAL DISTENSION [None]
  - ILEAL ULCER [None]
  - GASTROINTESTINAL DISORDER [None]
  - ABDOMINAL PAIN [None]
  - VOMITING [None]
  - ILEAL STENOSIS [None]
